FAERS Safety Report 4767833-3 (Version None)
Quarter: 2005Q3

REPORT INFORMATION
  Report Type: 
  Country: None (occurrence: None)
  Receive Date: 20050912
  Receipt Date: 20050830
  Transmission Date: 20060218
  Serious: Yes (Death, Other)
  Sender: FDA-Public Use
  Company Number: 2005122887

PATIENT
  Sex: Male

DRUGS (2)
  1. GEODON [Suspect]
     Indication: BIPOLAR DISORDER
  2. COCAINE (COCAINE) [Suspect]
     Indication: ILL-DEFINED DISORDER

REACTIONS (3)
  - MANIA [None]
  - MYOCARDIAL INFARCTION [None]
  - OVERDOSE [None]
